FAERS Safety Report 23340695 (Version 3)
Quarter: 2025Q1

REPORT INFORMATION
  Report Type: Report from Study
  Country: JP (occurrence: JP)
  Receive Date: 20231227
  Receipt Date: 20250128
  Transmission Date: 20250408
  Serious: Yes (Hospitalization, Other)
  Sender: ROCHE
  Company Number: JP-CHUGAI-2023045629

PATIENT
  Age: 12 Year
  Sex: Female
  Weight: 16.0 kg

DRUGS (5)
  1. EVRYSDI [Suspect]
     Active Substance: RISDIPLAM
     Indication: Spinal muscular atrophy
     Dosage: 3.98 MILLIGRAM, QD
     Route: 048
     Dates: start: 20220616
  2. EVRYSDI [Suspect]
     Active Substance: RISDIPLAM
     Dosage: 3.98 MILLIGRAM, QD
     Route: 048
     Dates: start: 20231023
  3. CARBOCYSTEINE [Concomitant]
     Active Substance: CARBOCYSTEINE
  4. MUCOSAL [Concomitant]
  5. CLARITHROMYCIN [Concomitant]
     Active Substance: CLARITHROMYCIN

REACTIONS (3)
  - Influenza [Recovered/Resolved]
  - Respiratory failure [Recovered/Resolved]
  - Aspiration [Unknown]

NARRATIVE: CASE EVENT DATE: 20231216
